FAERS Safety Report 17557906 (Version 1)
Quarter: 2020Q1

REPORT INFORMATION
  Report Type: Spontaneous
  Country: US (occurrence: US)
  Receive Date: 20200319
  Receipt Date: 20200319
  Transmission Date: 20200409
  Serious: Yes (Other)
  Sender: FDA-Public Use
  Company Number: US-TEVA-2020-US-1201164

PATIENT
  Age: 59 Year
  Sex: Female
  Weight: 84.37 kg

DRUGS (1)
  1. AJOVY [Suspect]
     Active Substance: FREMANEZUMAB-VFRM
     Indication: MIGRAINE
     Dosage: LAST DOSE BEFORE THE AE: -FEB-2020
     Dates: start: 201904

REACTIONS (6)
  - Dyspnoea [Recovering/Resolving]
  - Anaphylactic shock [Recovering/Resolving]
  - Speech disorder [Recovering/Resolving]
  - Swelling face [Recovering/Resolving]
  - Urticaria [Recovering/Resolving]
  - Adverse drug reaction [Unknown]

NARRATIVE: CASE EVENT DATE: 202002
